FAERS Safety Report 7959907-0 (Version None)
Quarter: 2011Q4

REPORT INFORMATION
  Report Type: 
  Country: None (occurrence: None)
  Receive Date: 20111206
  Receipt Date: 20111129
  Transmission Date: 20120403
  Serious: Yes (Hospitalization)
  Sender: FDA-Public Use
  Company Number: AT-MERCK-1112AUT00001

PATIENT
  Age: 70 Year
  Sex: Female
  Weight: 135 kg

DRUGS (4)
  1. PIPERACILLIN SODIUM AND TAZOBACTAM SODIUM [Concomitant]
     Route: 065
  2. CANCIDAS [Suspect]
     Indication: SEPSIS
     Route: 065
     Dates: start: 20111030, end: 20111030
  3. CANCIDAS [Suspect]
     Route: 065
     Dates: start: 20111031, end: 20111123
  4. VORICONAZOLE [Concomitant]
     Indication: CANDIDIASIS
     Route: 065
     Dates: start: 20111124

REACTIONS (2)
  - MEDICATION ERROR [None]
  - DRUG INEFFECTIVE [None]
